FAERS Safety Report 7279038-5 (Version None)
Quarter: 2011Q1

REPORT INFORMATION
  Report Type: 
  Country: None (occurrence: None)
  Receive Date: 20110207
  Receipt Date: 20110127
  Transmission Date: 20110831
  Serious: Yes (Other)
  Sender: FDA-Public Use
  Company Number: PHHY2010MX42834

PATIENT
  Sex: Male

DRUGS (6)
  1. METICORTEN [Concomitant]
  2. ACTRON [Concomitant]
  3. ACLASTA [Suspect]
     Dosage: 5 MG,
     Route: 042
     Dates: start: 20100201
  4. ACLASTA [Suspect]
     Indication: OSTEOPOROSIS
     Dosage: 5 MG/ 100ML PER YEAR
     Route: 042
     Dates: start: 20090203
  5. CALCIUM [Concomitant]
  6. DOLO-NEUROBION [Concomitant]

REACTIONS (3)
  - BONE PAIN [None]
  - GAIT DISTURBANCE [None]
  - MUSCLE INJURY [None]
